FAERS Safety Report 4636379-5 (Version None)
Quarter: 2005Q2

REPORT INFORMATION
  Report Type: 
  Country: None (occurrence: None)
  Receive Date: 20050413
  Receipt Date: 20050413
  Transmission Date: 20051028
  Serious: No
  Sender: FDA-Public Use
  Company Number: None

PATIENT
  Age: 59 Year
  Sex: Male
  Weight: 99.7913 kg

DRUGS (1)
  1. AMBIEN [Suspect]
     Indication: SLEEP DISORDER
     Dosage: 1  1 ORAL
     Route: 048
     Dates: start: 20050101, end: 20050330

REACTIONS (4)
  - ABDOMINAL DISCOMFORT [None]
  - CHEST DISCOMFORT [None]
  - FEELING HOT [None]
  - SENSATION OF PRESSURE [None]
